FAERS Safety Report 7516672-9 (Version None)
Quarter: 2011Q2

REPORT INFORMATION
  Report Type: 
  Country: None (occurrence: None)
  Receive Date: 20110601
  Receipt Date: 20110517
  Transmission Date: 20111010
  Serious: Yes (Hospitalization, Other)
  Sender: FDA-Public Use
  Company Number: DE-BAYER-2011-002650

PATIENT
  Age: 66 Year
  Sex: Female

DRUGS (8)
  1. SORAFENIB (RAF KINASE INHIBITOR) [Suspect]
     Indication: RENAL CELL CARCINOMA
     Dosage: 400 MG, BID
     Route: 048
     Dates: start: 20101022
  2. SUNITINIB MALATE [Suspect]
     Indication: RENAL CELL CARCINOMA
  3. SIMVASTATIN [Concomitant]
     Dosage: 10 MG, QD
  4. IBUPROFEN [Concomitant]
     Dosage: 800 MG, QD
  5. METFORMIN HCL [Concomitant]
     Dosage: 1700 MG, QD
     Dates: end: 20110107
  6. PANTOPRAZOLE [Concomitant]
     Dosage: 40 MG/D
  7. NIFEDIPINE [Concomitant]
     Dosage: 5 MG, QD
  8. AMITRIPTYLINE HCL [Concomitant]
     Dosage: DAILY DOSE 75 MG

REACTIONS (2)
  - ARTHRALGIA [None]
  - DEEP VEIN THROMBOSIS [None]
